FAERS Safety Report 15667883 (Version 1)
Quarter: 2018Q4

REPORT INFORMATION
  Report Type: Spontaneous
  Country: CN (occurrence: CN)
  Receive Date: 20181128
  Receipt Date: 20181128
  Transmission Date: 20190205
  Serious: Yes (Other)
  Sender: FDA-Public Use
  Company Number: CN-GILEAD-2018-0376299

PATIENT

DRUGS (3)
  1. LAMIVUDINE. [Concomitant]
     Active Substance: LAMIVUDINE
  2. VIREAD [Suspect]
     Active Substance: TENOFOVIR DISOPROXIL FUMARATE
     Indication: CHRONIC HEPATITIS B
     Dosage: UNK UNK, QOD
     Route: 065
  3. ENTECAVIR. [Suspect]
     Active Substance: ENTECAVIR
     Indication: CHRONIC HEPATITIS B
     Dosage: UNK, QD
     Route: 065

REACTIONS (4)
  - Hepatic function abnormal [Unknown]
  - Blood creatinine increased [Unknown]
  - Myocardial necrosis marker increased [Unknown]
  - Renal impairment [Unknown]
